FAERS Safety Report 7464949-8 (Version None)
Quarter: 2011Q2

REPORT INFORMATION
  Report Type: 
  Country: None (occurrence: None)
  Receive Date: 20110505
  Receipt Date: 20110505
  Transmission Date: 20111010
  Serious: No
  Sender: FDA-Public Use
  Company Number: None

PATIENT
  Age: 39 Year
  Sex: Male

DRUGS (1)
  1. TUBERCULIN PPD (APLISON) 5 T.U. 10.1 ML JHP PHARM [Suspect]
     Indication: MYCOBACTERIUM TUBERCULOSIS COMPLEX TEST
     Dosage: 0.1ML (NEW HIRE)/ANNUAL I.D.
     Route: 023
     Dates: start: 20110411

REACTIONS (1)
  - ERYTHEMA [None]
